FAERS Safety Report 24185036 (Version 1)
Quarter: 2024Q3

REPORT INFORMATION
  Report Type: Spontaneous
  Country: GR (occurrence: GR)
  Receive Date: 20240807
  Receipt Date: 20240807
  Transmission Date: 20241016
  Serious: Yes (Other)
  Sender: MYLAN
  Company Number: GR-MYLANLABS-2024M1033872

PATIENT
  Age: 68 Year
  Sex: Male

DRUGS (1)
  1. ATORVASTATIN [Suspect]
     Active Substance: ATORVASTATIN
     Indication: Dyslipidaemia
     Dosage: 40 MILLIGRAM,THE PATIENT RECEIVED TREATMENT WITH ATORVASTATIN SINCE 4 YEARS.
     Route: 065

REACTIONS (2)
  - Autoimmune myositis [Recovered/Resolved]
  - Immune-mediated myositis [Recovering/Resolving]
